FAERS Safety Report 20840326 (Version 5)
Quarter: 2022Q4

REPORT INFORMATION
  Report Type: Report from Study
  Country: US (occurrence: US)
  Receive Date: 20220517
  Receipt Date: 20221130
  Transmission Date: 20230112
  Serious: Yes (Other)
  Sender: FDA-Public Use
  Company Number: US-KYOWAKIRIN-2022BKK006492

PATIENT

DRUGS (1)
  1. MOGAMULIZUMAB [Suspect]
     Active Substance: MOGAMULIZUMAB
     Indication: Product used for unknown indication
     Dosage: UNK
     Route: 042
     Dates: end: 202211

REACTIONS (10)
  - Haematemesis [Unknown]
  - Skin fissures [Unknown]
  - Weight fluctuation [Unknown]
  - Tremor [Unknown]
  - Respiratory syncytial virus infection [Unknown]
  - Skin exfoliation [Not Recovered/Not Resolved]
  - Asthenia [Unknown]
  - Skin exfoliation [Not Recovered/Not Resolved]
  - Malaise [Unknown]
  - Decreased appetite [Unknown]
